FAERS Safety Report 9111446 (Version 1)
Quarter: 2013Q1

REPORT INFORMATION
  Report Type: Spontaneous
  Country: US (occurrence: US)
  Receive Date: 20130219
  Receipt Date: 20130219
  Transmission Date: 20140127
  Serious: No
  Sender: FDA-Public Use
  Company Number: US-BRISTOL-MYERS SQUIBB COMPANY-16549099

PATIENT
  Age: 32 Year
  Sex: Female

DRUGS (3)
  1. ORENCIA FOR INJ [Suspect]
     Indication: RHEUMATOID ARTHRITIS
     Dosage: 1 ST INJECTION?INTERRUPTED ON 18APR2012, ?THERAPY DURATION 3 WEEKS.
     Route: 058
     Dates: start: 20120401
  2. ARAVA [Concomitant]
  3. VICODIN [Concomitant]
     Dosage: 1 DF:5/500 QID PRN

REACTIONS (2)
  - Cough [Not Recovered/Not Resolved]
  - Insomnia [Unknown]
